FAERS Safety Report 24052563 (Version 2)
Quarter: 2024Q4

REPORT INFORMATION
  Report Type: Report from Study
  Country: US (occurrence: US)
  Receive Date: 20240705
  Receipt Date: 20241016
  Transmission Date: 20250115
  Serious: Yes (Hospitalization)
  Sender: ABBVIE
  Company Number: US-ABBVIE-5820374

PATIENT
  Sex: Female
  Weight: 77 kg

DRUGS (5)
  1. SKYRIZI [Suspect]
     Active Substance: RISANKIZUMAB-RZAA
     Indication: Psoriasis
     Dosage: FORM STRENGTH: 150 MG
     Route: 058
     Dates: start: 202404, end: 202404
  2. SKYRIZI [Suspect]
     Active Substance: RISANKIZUMAB-RZAA
     Dosage: FORM STRENGTH: 150 MG
     Route: 058
     Dates: start: 202403, end: 202403
  3. LUNESTA [Concomitant]
     Active Substance: ESZOPICLONE
     Indication: Sleep disorder
  4. ROSUVASTATIN [Concomitant]
     Active Substance: ROSUVASTATIN
     Indication: Blood cholesterol
  5. FENOFIBRATE S [Concomitant]
     Indication: Blood triglycerides abnormal

REACTIONS (8)
  - Diverticulitis [Not Recovered/Not Resolved]
  - Cystitis [Unknown]
  - Abdominal pain lower [Recovered/Resolved]
  - Feeding disorder [Recovered/Resolved]
  - Bladder discomfort [Recovered/Resolved]
  - Pain [Recovered/Resolved]
  - Pollakiuria [Recovered/Resolved]
  - Pollakiuria [Recovered/Resolved]

NARRATIVE: CASE EVENT DATE: 20240101
